FAERS Safety Report 4641563-0 (Version None)
Quarter: 2005Q2

REPORT INFORMATION
  Report Type: 
  Country: None (occurrence: None)
  Receive Date: 20050420
  Receipt Date: 20050331
  Transmission Date: 20051028
  Serious: Yes (Other)
  Sender: FDA-Public Use
  Company Number: USA050187540

PATIENT
  Age: 52 Year
  Sex: Male
  Weight: 92 kg

DRUGS (4)
  1. CYMBALTA [Suspect]
     Indication: DEPRESSION
     Dosage: 60 MG DAY
     Dates: start: 20041109, end: 20041201
  2. CIALIS [Concomitant]
  3. DIFLUCAN [Concomitant]
  4. LEVOXYL [Concomitant]

REACTIONS (3)
  - CHOLESTASIS [None]
  - HEPATIC TRAUMA [None]
  - HEPATOMEGALY [None]
